FAERS Safety Report 8219627-4 (Version None)
Quarter: 2012Q1

REPORT INFORMATION
  Report Type: 
  Country: None (occurrence: None)
  Receive Date: 20120319
  Receipt Date: 20120313
  Transmission Date: 20120608
  Serious: Yes (Death, Hospitalization)
  Sender: FDA-Public Use
  Company Number: US-CELGENEUS-163-21880-12031580

PATIENT
  Sex: Male

DRUGS (10)
  1. DIAZEPAM [Concomitant]
     Route: 065
  2. PHENOBARBITAL TAB [Concomitant]
     Route: 065
  3. PHENYTOIN [Concomitant]
     Route: 065
  4. FAMOTIDINE [Concomitant]
     Route: 065
  5. LORAZEPAM [Concomitant]
     Route: 065
  6. TIOTROPIUM [Concomitant]
     Route: 065
  7. MORPHINE [Concomitant]
     Route: 065
  8. ALBUTEROL [Concomitant]
     Route: 065
  9. REVLIMID [Suspect]
     Indication: MULTIPLE MYELOMA
     Dosage: 10 MILLIGRAM
     Route: 048
     Dates: start: 20080201, end: 20120201
  10. FLUTICASONE PROPIONATE/SALMETEROL [Concomitant]
     Route: 065

REACTIONS (3)
  - FEMUR FRACTURE [None]
  - FALL [None]
  - MULTIPLE MYELOMA [None]
